FAERS Safety Report 6237063-7 (Version None)
Quarter: 2009Q2

REPORT INFORMATION
  Report Type: 
  Country: None (occurrence: None)
  Receive Date: 20090619
  Receipt Date: 20090518
  Transmission Date: 20091009
  Serious: No
  Sender: FDA-Public Use
  Company Number: US-ASTRAZENECA-2009UW12762

PATIENT
  Sex: Female

DRUGS (2)
  1. SYMBICORT [Suspect]
     Route: 055
  2. PROAIR HFA [Concomitant]

REACTIONS (4)
  - COUGH [None]
  - LYMPHADENOPATHY [None]
  - PYREXIA [None]
  - WHEEZING [None]
